FAERS Safety Report 4277044-6 (Version None)
Quarter: 2004Q1

REPORT INFORMATION
  Report Type: 
  Country: None (occurrence: None)
  Receive Date: 20040120
  Receipt Date: 20040106
  Transmission Date: 20041129
  Serious: Yes (Hospitalization)
  Sender: FDA-Public Use
  Company Number: 2003AP02389

PATIENT
  Age: 72 Year
  Sex: Male

DRUGS (6)
  1. MEROPEN [Suspect]
     Indication: NOSOCOMIAL INFECTION
     Dosage: 1 G DAILY IVD
     Dates: start: 20030119, end: 20030130
  2. MEROPEN [Suspect]
     Indication: PNEUMONIA
     Dosage: 1 G DAILY IVD
     Dates: start: 20030119, end: 20030130
  3. OMEGACIN [Suspect]
     Indication: NOSOCOMIAL INFECTION
     Dosage: 2 G DAILY IV
     Route: 042
     Dates: start: 20030103, end: 20030118
  4. OMEGACIN [Suspect]
     Indication: PNEUMONIA
     Dosage: 2 G DAILY IV
     Route: 042
     Dates: start: 20030103, end: 20030118
  5. CLINDAMYCIN HCL [Concomitant]
  6. MINOMYCIN [Concomitant]

REACTIONS (2)
  - CARDIAC FAILURE [None]
  - DISSEMINATED INTRAVASCULAR COAGULATION [None]
